FAERS Safety Report 12285066 (Version 1)
Quarter: 2016Q2

REPORT INFORMATION
  Report Type: Spontaneous
  Country: US (occurrence: None)
  Receive Date: 20160419
  Receipt Date: 20160419
  Transmission Date: 20160815
  Serious: Yes (Other)
  Sender: FDA-Public Use
  Company Number: None

PATIENT
  Sex: Female
  Weight: 90.72 kg

DRUGS (3)
  1. PROVENTIL MDI [Concomitant]
  2. MIRENA [Suspect]
     Active Substance: LEVONORGESTREL
     Indication: CONTRACEPTION
     Route: 015
  3. MIRENA [Suspect]
     Active Substance: LEVONORGESTREL
     Indication: MENSTRUAL DISORDER
     Route: 015

REACTIONS (19)
  - Blood pressure increased [None]
  - Anxiety [None]
  - Hair growth abnormal [None]
  - Breast pain [None]
  - Fatigue [None]
  - Weight increased [None]
  - Feeling abnormal [None]
  - Breast swelling [None]
  - Arthralgia [None]
  - Malaise [None]
  - Uterine pain [None]
  - Menstruation irregular [None]
  - Vaginal odour [None]
  - Vaginal discharge [None]
  - Alopecia [None]
  - Pelvic pain [None]
  - Vision blurred [None]
  - Dizziness [None]
  - Confusional state [None]

NARRATIVE: CASE EVENT DATE: 20151201
